FAERS Safety Report 8892237 (Version 2)
Quarter: 2012Q4

REPORT INFORMATION
  Report Type: 
  Country: SE (occurrence: SE)
  Receive Date: 20121107
  Receipt Date: 20121115
  Transmission Date: 20130627
  Serious: No
  Sender: FDA-Public Use
  Company Number: SE-ALLERGAN-1215166US

PATIENT
  Age: 74 Year
  Sex: Male

DRUGS (1)
  1. GANFORT [Suspect]
     Indication: OCULAR HYPERTENSION
     Dosage: 2 Gtt, qd
     Route: 047
     Dates: start: 20121020, end: 20121108

REACTIONS (3)
  - Corneal abrasion [Unknown]
  - Visual acuity reduced [Unknown]
  - Eye irritation [Unknown]
